FAERS Safety Report 5946905-1 (Version None)
Quarter: 2008Q4

REPORT INFORMATION
  Report Type: 
  Country: None (occurrence: None)
  Receive Date: 20081107
  Receipt Date: 20081107
  Transmission Date: 20090506
  Serious: No
  Sender: FDA-Public Use
  Company Number: None

PATIENT
  Age: 41 Year
  Sex: Female
  Weight: 57.6068 kg

DRUGS (1)
  1. SEASONIQUE [Suspect]
     Indication: POLYCYSTIC OVARIES
     Dosage: 1 TABLET DAILY PO
     Route: 048
     Dates: start: 20080227, end: 20080619

REACTIONS (2)
  - PELVIC PAIN [None]
  - SKIN DISCOLOURATION [None]
